FAERS Safety Report 25395325 (Version 1)
Quarter: 2025Q2

REPORT INFORMATION
  Report Type: Spontaneous
  Country: FR (occurrence: FR)
  Receive Date: 20250604
  Receipt Date: 20250604
  Transmission Date: 20250717
  Serious: Yes (Other)
  Sender: CSL BEHRING
  Company Number: None

PATIENT
  Age: 66 Year
  Sex: Male
  Weight: 80 kg

DRUGS (2)
  1. PRIVIGEN [Suspect]
     Active Substance: HUMAN IMMUNOGLOBULIN G
     Indication: Hypogammaglobulinaemia
     Route: 042
     Dates: start: 20250403, end: 20250403
  2. FLEBOGAMMA DIF [Suspect]
     Active Substance: HUMAN IMMUNOGLOBULIN G
     Route: 042

REACTIONS (2)
  - Infusion related reaction [Recovered/Resolved]
  - Infusion related reaction [Recovered/Resolved]

NARRATIVE: CASE EVENT DATE: 20250403
